FAERS Safety Report 5163209-8 (Version None)
Quarter: 2006Q4

REPORT INFORMATION
  Report Type: 
  Country: None (occurrence: None)
  Receive Date: 20061204
  Receipt Date: 20060704
  Transmission Date: 20070319
  Serious: Yes (Death, Life-Threatening, Hospitalization, Disabling)
  Sender: FDA-Public Use
  Company Number: 2006AP03044

PATIENT
  Age: 29340 Day
  Sex: Female
  Weight: 71 kg

DRUGS (5)
  1. IRESSA [Suspect]
     Indication: LUNG NEOPLASM MALIGNANT
     Route: 048
     Dates: start: 20030328, end: 20060307
  2. GEMZAR [Concomitant]
     Dosage: FIRST LINE - SIX CYCLES
     Dates: start: 20000101, end: 20020101
  3. CISPLATIN [Concomitant]
     Dosage: FIRST LINE - SIX CYCLES
     Dates: start: 20000101, end: 20020101
  4. NAVELBINE [Concomitant]
     Dosage: SECOND LINE - SIX CYCLES
     Dates: start: 20021101, end: 20030101
  5. TAMOXIFEN CITRATE [Concomitant]
     Indication: BREAST CANCER
     Route: 048
     Dates: start: 20040301, end: 20060307

REACTIONS (1)
  - PNEUMONIA [None]
